FAERS Safety Report 10409146 (Version 1)
Quarter: 2014Q3

REPORT INFORMATION
  Report Type: Report from Study
  Country: BR (occurrence: BR)
  Receive Date: 20140826
  Receipt Date: 20140826
  Transmission Date: 20150326
  Serious: Yes (Other)
  Sender: FDA-Public Use
  Company Number: PHHY2014BR105805

PATIENT
  Sex: Female
  Weight: 65 kg

DRUGS (5)
  1. OMEPRAZOLE. [Suspect]
     Active Substance: OMEPRAZOLE
     Indication: OESOPHAGEAL DISORDER
     Dosage: 1 DF, QD (IN THE MORNING)
     Route: 048
     Dates: end: 20140819
  2. OMEPRAZOLE. [Suspect]
     Active Substance: OMEPRAZOLE
     Indication: GASTRIC DISORDER
  3. EXELON PATCH [Suspect]
     Active Substance: RIVASTIGMINE
     Dosage: 9.5 MG, DAILY (10 CM2)
     Route: 062
     Dates: end: 20140819
  4. DOMPERIDONE [Suspect]
     Active Substance: DOMPERIDONE
     Indication: GASTROOESOPHAGEAL REFLUX DISEASE
     Dosage: 1 DF, DAILY (30 MIN BEFORE LUNCH)
     Route: 048
     Dates: end: 20140819
  5. EXELON PATCH [Suspect]
     Active Substance: RIVASTIGMINE
     Indication: DEMENTIA
     Dosage: 4.6 MG, DAILY (5 CM2)
     Route: 062

REACTIONS (7)
  - Parkinsonism [Unknown]
  - General physical health deterioration [Unknown]
  - Joint stiffness [Unknown]
  - Vomiting [Unknown]
  - Gastric disorder [Unknown]
  - Gastrooesophageal reflux disease [Unknown]
  - Oesophageal disorder [Unknown]
